FAERS Safety Report 7935132 (Version 2)
Quarter: 2014Q4

REPORT INFORMATION
  Report Type: Spontaneous
  Country: US (occurrence: US)
  Receive Date: 20110509
  Receipt Date: 20141020
  Transmission Date: 20150529
  Serious: Yes (Other)
  Sender: FDA-Public Use
  Company Number: US-ASTRAZENECA-2011SE25157

PATIENT
  Age: 55 Year
  Sex: Female

DRUGS (2)
  1. NEXIUM [Suspect]
     Active Substance: ESOMEPRAZOLE MAGNESIUM
     Route: 048
  2. CRESTOR [Suspect]
     Active Substance: ROSUVASTATIN CALCIUM
     Route: 048

REACTIONS (5)
  - Neoplasm malignant [Unknown]
  - Ulcer [Unknown]
  - Activities of daily living impaired [Unknown]
  - Immune system disorder [Unknown]
  - Blindness [Unknown]
